FAERS Safety Report 6293176-5 (Version None)
Quarter: 2009Q3

REPORT INFORMATION
  Report Type: 
  Country: None (occurrence: None)
  Receive Date: 20090731
  Receipt Date: 20090728
  Transmission Date: 20100115
  Serious: Yes (Hospitalization)
  Sender: FDA-Public Use
  Company Number: US-WYE-H10012809

PATIENT
  Sex: Male

DRUGS (5)
  1. RAPAMUNE [Suspect]
     Indication: PROPHYLAXIS AGAINST TRANSPLANT REJECTION
     Dosage: UNSPECIFIED
     Route: 048
     Dates: start: 20030926, end: 20090707
  2. AZITHROMYCIN [Concomitant]
  3. PREDNISONE TAB [Concomitant]
  4. CELLCEPT [Concomitant]
     Indication: PROPHYLAXIS AGAINST TRANSPLANT REJECTION
  5. PROGRAF [Concomitant]

REACTIONS (1)
  - HERPES ZOSTER [None]
